FAERS Safety Report 5235056-X (Version None)
Quarter: 2007Q1

REPORT INFORMATION
  Report Type: 
  Country: None (occurrence: None)
  Receive Date: 20070207
  Receipt Date: 20070130
  Transmission Date: 20070707
  Serious: Yes (Hospitalization)
  Sender: FDA-Public Use
  Company Number: TPA2006A00724

PATIENT
  Age: 69 Year
  Sex: Female
  Weight: 113.3993 kg

DRUGS (8)
  1. ROZEREM [Suspect]
     Indication: INSOMNIA
     Dosage: 8 MG, QHS, PER ORAL
     Route: 048
     Dates: start: 20060420, end: 20060425
  2. PAXIL [Suspect]
     Indication: AFFECTIVE DISORDER
     Dosage: 20 MG, 1 IN 1 D, PER ORAL
     Route: 048
  3. HYZAAR [Suspect]
     Indication: BLOOD PRESSURE
     Dosage: 1 IN 1 D, PER ORAL
     Route: 048
  4. SYNTHROID [Suspect]
     Indication: HYPOTHYROIDISM
     Dosage: 125 MCG, 1 IN 1 D, PER ORAL
     Route: 048
  5. ALEVE [Concomitant]
  6. CALCIUM (CALCIUM) [Concomitant]
  7. FISH OIL (FISH OIL) [Concomitant]
  8. GLUCOSAMINE (GLUCOSAMINE) [Concomitant]

REACTIONS (8)
  - BLOOD PRESSURE SYSTOLIC INCREASED [None]
  - DIARRHOEA [None]
  - DIZZINESS [None]
  - GAIT DISTURBANCE [None]
  - NAUSEA [None]
  - SINUS BRADYCARDIA [None]
  - VERTIGO POSITIONAL [None]
  - VOMITING [None]
